FAERS Safety Report 8022849-9 (Version None)
Quarter: 2012Q1

REPORT INFORMATION
  Report Type: 
  Country: None (occurrence: None)
  Receive Date: 20120104
  Receipt Date: 20111227
  Transmission Date: 20120608
  Serious: Yes (Hospitalization)
  Sender: FDA-Public Use
  Company Number: JP-ROCHE-1017100

PATIENT
  Sex: Male

DRUGS (12)
  1. LOXONIN [Concomitant]
     Indication: RHEUMATOID ARTHRITIS
     Route: 048
     Dates: end: 20100721
  2. LENDORMIN [Concomitant]
     Indication: INSOMNIA
     Route: 048
  3. AMLODIPINE [Concomitant]
     Indication: HYPERTENSION
     Route: 048
  4. CANDESARTAN CILEXETIL [Concomitant]
     Indication: HYPERTENSION
     Route: 048
  5. ACTONEL [Concomitant]
     Indication: OSTEOPOROSIS
     Route: 048
  6. MUCOSTA [Concomitant]
     Indication: GASTRITIS
     Route: 048
  7. PREDNISOLONE [Concomitant]
     Route: 048
     Dates: end: 20100721
  8. ACTEMRA [Suspect]
  9. LANSOPRAZOLE [Concomitant]
     Indication: GASTRITIS
     Route: 048
     Dates: end: 20100721
  10. ACTEMRA [Suspect]
     Indication: RHEUMATOID ARTHRITIS
     Route: 041
     Dates: start: 20090625, end: 20100107
  11. PREDNISOLONE [Concomitant]
     Indication: RHEUMATOID ARTHRITIS
     Route: 048
  12. FUROSEMIDE [Concomitant]
     Indication: HYPERTENSION
     Route: 048
     Dates: end: 20100721

REACTIONS (2)
  - PLEURAL EFFUSION [None]
  - PLEURISY [None]
